FAERS Safety Report 8501932 (Version 4)
Quarter: 2012Q4

REPORT INFORMATION
  Report Type: 
  Country: US (occurrence: US)
  Receive Date: 20120410
  Receipt Date: 20121203
  Transmission Date: 20130627
  Serious: Yes (Hospitalization, Other)
  Sender: FDA-Public Use
  Company Number: US-PFIZER INC-2011254363

PATIENT
  Age: 55 Year
  Sex: Female
  Weight: 62.59 kg

DRUGS (9)
  1. LYRICA [Suspect]
     Indication: FIBROMYALGIA
     Dosage: 150 mg, 3x/day
     Route: 048
     Dates: start: 2008
  2. LYRICA [Suspect]
     Indication: HEADACHE
  3. HYDROCODONE [Suspect]
     Indication: MUSCLE SPASM
     Dosage: UNK
  4. HYDROCODONE [Suspect]
     Indication: HEADACHE
  5. CLONIDINE [Suspect]
     Indication: ORTHOSTATIC HYPERTENSION
     Dosage: 0.2 mg, as needed
  6. CELEXA [Concomitant]
     Indication: DEPRESSION
     Dosage: 40mg daily
  7. VALIUM [Concomitant]
     Indication: MUSCLE SPASM
     Dosage: 5 mg, as needed
  8. VALIUM [Concomitant]
     Dosage: 10 mg, 1x/day
  9. METHADONE [Concomitant]
     Dosage: UNK

REACTIONS (12)
  - Aspiration [Recovered/Resolved]
  - Orthostatic hypertension [Recovered/Resolved]
  - Vomiting [Recovered/Resolved]
  - Abdominal distension [Recovered/Resolved]
  - Feeling abnormal [Recovered/Resolved]
  - Ulcer haemorrhage [Unknown]
  - Overdose [Unknown]
  - Drug dependence [Not Recovered/Not Resolved]
  - Drug ineffective [Unknown]
  - Dry mouth [Unknown]
  - Dry eye [Unknown]
  - Constipation [Unknown]
